FAERS Safety Report 4786491-5 (Version None)
Quarter: 2005Q3

REPORT INFORMATION
  Report Type: 
  Country: None (occurrence: None)
  Receive Date: 20050927
  Receipt Date: 20050720
  Transmission Date: 20060218
  Serious: No
  Sender: FDA-Public Use
  Company Number: USA0507103428

PATIENT
  Age: 38 Year
  Sex: Female

DRUGS (2)
  1. STRATTERA [Suspect]
     Indication: PANIC DISORDER
     Dosage: 160 MG DAY
     Dates: start: 20040120
  2. EFFEXOR [Concomitant]

REACTIONS (1)
  - PRESCRIBED OVERDOSE [None]
